FAERS Safety Report 9860697 (Version 1)
Quarter: 2014Q1

REPORT INFORMATION
  Report Type: Spontaneous
  Country: AT (occurrence: None)
  Receive Date: 20140130
  Receipt Date: 20140130
  Transmission Date: 20141002
  Serious: Yes (Other)
  Sender: FDA-Public Use
  Company Number: FK201400203

PATIENT
  Age: 51 Year
  Sex: Female

DRUGS (6)
  1. DEXAMETHASONE [Suspect]
     Indication: PROPHYLAXIS OF NAUSEA AND VOMITING
     Dosage: 4 MG, ONCE, INTRAVENOUS (NOT OTHERWISE SPECIFIED)?
     Route: 042
  2. LACTATED RINGERS (FLEBOBAG RING LACT) [Concomitant]
  3. FENTANYL (FENTANYL) [Concomitant]
  4. PROPOFOL (PROPOFOL) [Concomitant]
  5. ROCURONIUM (ROCURONIUM) [Concomitant]
  6. SEVOFLURANE (SEVOFLURANE) [Concomitant]

REACTIONS (1)
  - Sinus bradycardia [None]
